FAERS Safety Report 8243240-6 (Version None)
Quarter: 2012Q1

REPORT INFORMATION
  Report Type: 
  Country: None (occurrence: None)
  Receive Date: 20120329
  Receipt Date: 20120327
  Transmission Date: 20120608
  Serious: Yes (Death, Hospitalization)
  Sender: FDA-Public Use
  Company Number: AU-B.I. PHARMACEUTICALS,INC./RIDGEFIELD-2012-AU-00667AU

PATIENT
  Sex: Male

DRUGS (8)
  1. SPIRIVA [Concomitant]
  2. PRADAXA [Suspect]
     Indication: ATRIAL FIBRILLATION
     Dosage: 220 MG
     Dates: start: 20110901, end: 20111001
  3. PANTOPRAZOLE [Concomitant]
  4. OXYGEN [Concomitant]
  5. SYMBICORT [Concomitant]
  6. DILTIAZEM HCL [Concomitant]
  7. AMIODARONE HCL [Concomitant]
  8. ALBUTEROL [Concomitant]

REACTIONS (2)
  - PNEUMONIA [None]
  - CHRONIC OBSTRUCTIVE PULMONARY DISEASE [None]
